FAERS Safety Report 14480473 (Version 1)
Quarter: 2018Q1

REPORT INFORMATION
  Report Type: Spontaneous
  Country: US (occurrence: US)
  Receive Date: 20180201
  Receipt Date: 20180201
  Transmission Date: 20180509
  Serious: No
  Sender: FDA-Public Use
  Company Number: None

PATIENT
  Age: 23 Year
  Sex: Male

DRUGS (1)
  1. HUMIRA [Suspect]
     Active Substance: ADALIMUMAB
     Indication: CROHN^S DISEASE
     Route: 058
     Dates: start: 20151113

REACTIONS (6)
  - Chest pain [None]
  - Nipple pain [None]
  - Intestinal obstruction [None]
  - Breast pain [None]
  - Crohn^s disease [None]
  - Pancreatitis [None]

NARRATIVE: CASE EVENT DATE: 20180130
